FAERS Safety Report 6906165-1 (Version None)
Quarter: 2010Q3

REPORT INFORMATION
  Report Type: 
  Country: None (occurrence: None)
  Receive Date: 20100803
  Receipt Date: 20100803
  Transmission Date: 20110219
  Serious: Yes (Other)
  Sender: FDA-Public Use
  Company Number: None

PATIENT
  Age: 46 Year
  Sex: Male
  Weight: 77.1115 kg

DRUGS (1)
  1. CIPRO [Suspect]
     Indication: PROSTATITIS
     Dosage: 1 TABLET TWICE DAILY PO
     Route: 048
     Dates: start: 20100529, end: 20100601

REACTIONS (6)
  - DEPRESSION [None]
  - DIZZINESS [None]
  - HEADACHE [None]
  - NAUSEA [None]
  - PARAESTHESIA [None]
  - TENDONITIS [None]
